FAERS Safety Report 5513160-6 (Version None)
Quarter: 2007Q4

REPORT INFORMATION
  Report Type: 
  Country: None (occurrence: None)
  Receive Date: 20071112
  Receipt Date: 20070222
  Transmission Date: 20080405
  Serious: Yes (Other)
  Sender: FDA-Public Use
  Company Number: US-BRISTOL-MYERS SQUIBB COMPANY-13691696

PATIENT

DRUGS (2)
  1. SUSTIVA [Suspect]
  2. TRUVADA [Suspect]

REACTIONS (1)
  - PANCREATITIS [None]
